FAERS Safety Report 4724984-7 (Version None)
Quarter: 2005Q3

REPORT INFORMATION
  Report Type: 
  Country: None (occurrence: None)
  Receive Date: 20050722
  Receipt Date: 20050708
  Transmission Date: 20060218
  Serious: Yes (Hospitalization)
  Sender: FDA-Public Use
  Company Number: 8011074

PATIENT
  Age: 21 Year
  Sex: Male

DRUGS (7)
  1. KEPPRA [Suspect]
     Indication: EPILEPSY
     Dosage: 250 MG PO
     Route: 048
     Dates: start: 20030207, end: 20030215
  2. TOPIMAX [Concomitant]
  3. STESOLID [Concomitant]
  4. IKTORIVIL [Concomitant]
  5. VITAMINERAL [Concomitant]
  6. LAKTULOS APELSIN PHARMACIA [Concomitant]
  7. MELATONIN [Concomitant]

REACTIONS (1)
  - HEMIPARESIS [None]
